FAERS Safety Report 5633043-0 (Version None)
Quarter: 2008Q1

REPORT INFORMATION
  Report Type: 
  Country: None (occurrence: None)
  Receive Date: 20080214
  Receipt Date: 20080205
  Transmission Date: 20080703
  Serious: Yes (Death)
  Sender: FDA-Public Use
  Company Number: E2020-02239-SPO-GB

PATIENT
  Sex: Male

DRUGS (1)
  1. ARICEPT [Suspect]
     Dosage: 5 MG, 1 IN 1 D, ORAL
     Route: 048

REACTIONS (5)
  - ABASIA [None]
  - BRADYCARDIA [None]
  - DRUG INEFFECTIVE [None]
  - SENILE DEMENTIA [None]
  - UNEVALUABLE EVENT [None]
